FAERS Safety Report 24265347 (Version 2)
Quarter: 2024Q3

REPORT INFORMATION
  Report Type: Spontaneous
  Country: US (occurrence: US)
  Receive Date: 20240829
  Receipt Date: 20240920
  Transmission Date: 20241017
  Serious: No
  Sender: BAUSCH AND LOMB
  Company Number: US-BAUSCHBL-2024BNL032149

PATIENT
  Sex: Female

DRUGS (1)
  1. XIIDRA [Suspect]
     Active Substance: LIFITEGRAST
     Indication: Dry eye
     Route: 065

REACTIONS (4)
  - Thermal burn [Recovered/Resolved]
  - Burning sensation [Recovered/Resolved]
  - Vision blurred [Recovered/Resolved]
  - Drug effect less than expected [Unknown]
